FAERS Safety Report 8429452-7 (Version None)
Quarter: 2012Q2

REPORT INFORMATION
  Report Type: 
  Country: None (occurrence: None)
  Receive Date: 20120323
  Receipt Date: 20110519
  Transmission Date: 20120825
  Serious: Yes (Hospitalization, Other)
  Sender: FDA-Public Use
  Company Number: 163-21880-11042978

PATIENT
  Age: 66 Year
  Sex: Female
  Weight: 139.8 kg

DRUGS (21)
  1. REVLIMID [Suspect]
     Indication: MULTIPLE MYELOMA
     Dosage: 25 MG, DAILY X 21 DAYS, PO
     Route: 048
     Dates: start: 20110302
  2. GLIPIZIDE [Concomitant]
  3. DYAZIDE [Concomitant]
  4. ZOFRAN [Concomitant]
  5. FOLIC ACID [Concomitant]
  6. FERGON [Concomitant]
  7. DEXAMETHASONE [Concomitant]
  8. CALCIFEROL (ERGOCALCIFEROL) [Concomitant]
  9. VICODIN [Concomitant]
  10. NORVASC [Concomitant]
  11. VELCADE [Concomitant]
  12. REGLAN [Concomitant]
  13. FEXOFENADINE HCL [Concomitant]
  14. FOSAMAX [Concomitant]
  15. LISINOPRIL [Concomitant]
  16. PROTONIX [Concomitant]
  17. ATENOLOL [Concomitant]
  18. NORMAL SALINE W/ POTASSIUM CHLORIDE (SODIUM CHLORIDE) [Concomitant]
  19. DIFLUCAN [Concomitant]
  20. NOVOLIN N [Concomitant]
  21. MS CONTIN [Concomitant]

REACTIONS (4)
  - GASTROINTESTINAL HAEMORRHAGE [None]
  - GASTRITIS [None]
  - ANAEMIA [None]
  - CHOLECYSTITIS ACUTE [None]
